FAERS Safety Report 7088570-9 (Version None)
Quarter: 2010Q4

REPORT INFORMATION
  Report Type: 
  Country: None (occurrence: None)
  Receive Date: 20101028
  Receipt Date: 20101013
  Transmission Date: 20110411
  Serious: Yes (Other)
  Sender: FDA-Public Use
  Company Number: AUR-APL-2010-02565

PATIENT
  Age: 58 Year

DRUGS (3)
  1. RISPERIDONE [Suspect]
     Dosage: 5MG, DAILY
  2. METHADONE [Suspect]
     Dosage: 5MG, TID
  3. CLOZEPAM [Suspect]
     Dosage: 4MG, DAILY

REACTIONS (7)
  - AREFLEXIA [None]
  - ASPIRATION [None]
  - BLOOD PROLACTIN INCREASED [None]
  - DYSPHAGIA [None]
  - GYNAECOMASTIA [None]
  - VIITH NERVE PARALYSIS [None]
  - WEIGHT DECREASED [None]
